FAERS Safety Report 23932009 (Version 1)
Quarter: 2024Q2

REPORT INFORMATION
  Report Type: Spontaneous
  Country: US (occurrence: US)
  Receive Date: 20240603
  Receipt Date: 20240603
  Transmission Date: 20240716
  Serious: No
  Sender: FDA-Public Use
  Company Number: US-LUPIN PHARMACEUTICALS INC.-2024-04428

PATIENT

DRUGS (4)
  1. ALBUTEROL SULFATE [Suspect]
     Active Substance: ALBUTEROL SULFATE
     Indication: Asthma
     Dosage: UNK, PRN, 4 TIMES A DAY AS NEEDED,5 MONTHS AGO
  2. ALBUTEROL SULFATE [Suspect]
     Active Substance: ALBUTEROL SULFATE
     Dosage: UNK, PRN, 4 TIMES A DAY AS NEEDED,5 MONTHS AGO
  3. ALBUTEROL SULFATE [Suspect]
     Active Substance: ALBUTEROL SULFATE
     Dosage: UNK, PRN, 4 TIMES A DAY AS NEEDED,5 MONTHS AGO
  4. ALBUTEROL SULFATE [Suspect]
     Active Substance: ALBUTEROL SULFATE
     Dosage: UNK, PRN, 4 TIMES A DAY AS NEEDED,5 MONTHS AGO

REACTIONS (3)
  - Wrong technique in product usage process [Unknown]
  - Product expiration date issue [Unknown]
  - No adverse event [Unknown]
